FAERS Safety Report 5257185-7 (Version None)
Quarter: 2007Q1

REPORT INFORMATION
  Report Type: 
  Country: None (occurrence: None)
  Receive Date: 20070307
  Receipt Date: 20070306
  Transmission Date: 20070707
  Serious: Yes (Disabling)
  Sender: FDA-Public Use
  Company Number: US-GLAXOSMITHKLINE-A0638182A

PATIENT
  Age: 68 Year
  Sex: Female
  Weight: 74.5 kg

DRUGS (1)
  1. REQUIP [Suspect]
     Indication: ARTHRITIS
     Dates: start: 20061201

REACTIONS (4)
  - BALANCE DISORDER [None]
  - DIZZINESS [None]
  - DRUG TOXICITY [None]
  - FALL [None]
